FAERS Safety Report 21558835 (Version 1)
Quarter: 2022Q4

REPORT INFORMATION
  Report Type: Spontaneous
  Country: US (occurrence: US)
  Receive Date: 20221107
  Receipt Date: 20221107
  Transmission Date: 20230112
  Serious: Yes (Other)
  Sender: FDA-Public Use
  Company Number: US-Melinta Therapeutics, LLC-US-MLNT-22-00218

PATIENT
  Age: 68 Year
  Sex: Female
  Weight: 50.35 kg

DRUGS (3)
  1. METOPROLOL SUCCINATE [Suspect]
     Active Substance: METOPROLOL SUCCINATE
     Indication: Hyperthyroidism
     Dates: start: 20220216
  2. METOPROLOL SUCCINATE [Suspect]
     Active Substance: METOPROLOL SUCCINATE
     Indication: Tremor
  3. SYMBICORT [Suspect]
     Active Substance: BUDESONIDE\FORMOTEROL FUMARATE DIHYDRATE
     Indication: Chronic obstructive pulmonary disease
     Dosage: NOT PROVIDED

REACTIONS (12)
  - Cataract [Unknown]
  - Vaginal prolapse [Unknown]
  - Rectal prolapse [Unknown]
  - Visual impairment [Unknown]
  - Eyelid ptosis [Unknown]
  - Panic attack [Unknown]
  - Mood altered [Unknown]
  - Dyspnoea [Unknown]
  - Gait inability [Unknown]
  - Ill-defined disorder [Unknown]
  - Off label use [Unknown]
  - Drug ineffective for unapproved indication [Unknown]

NARRATIVE: CASE EVENT DATE: 20220216
